FAERS Safety Report 5852076-2 (Version None)
Quarter: 2008Q3

REPORT INFORMATION
  Report Type: 
  Country: None (occurrence: None)
  Receive Date: 20080819
  Receipt Date: 20080819
  Transmission Date: 20090109
  Serious: No
  Sender: FDA-Public Use
  Company Number: None

PATIENT
  Sex: Female
  Weight: 44 kg

DRUGS (1)
  1. RITUXAN [Suspect]
     Indication: IDIOPATHIC THROMBOCYTOPENIC PURPURA
     Dosage: 375/M2 = 514MG EVERY WEEK X4 IV DRIP
     Route: 041
     Dates: start: 20080404, end: 20080425

REACTIONS (2)
  - PRURITUS [None]
  - URTICARIA [None]
